FAERS Safety Report 7428673-X (Version None)
Quarter: 2011Q2

REPORT INFORMATION
  Report Type: 
  Country: None (occurrence: None)
  Receive Date: 20110421
  Receipt Date: 20110414
  Transmission Date: 20111010
  Serious: No
  Sender: FDA-Public Use
  Company Number: US-BIOGENIDEC-2011BI014092

PATIENT
  Sex: Female

DRUGS (2)
  1. AVONEX [Suspect]
     Route: 030
     Dates: start: 20080801, end: 20100101
  2. AVONEX [Suspect]
     Indication: MULTIPLE SCLEROSIS
     Route: 030
     Dates: start: 20100101

REACTIONS (5)
  - MIGRAINE [None]
  - BONE PAIN [None]
  - MULTIPLE SCLEROSIS RELAPSE [None]
  - RHINORRHOEA [None]
  - MEMORY IMPAIRMENT [None]
